FAERS Safety Report 5929123-2 (Version None)
Quarter: 2008Q4

REPORT INFORMATION
  Report Type: 
  Country: None (occurrence: None)
  Receive Date: 20081023
  Receipt Date: 20081023
  Transmission Date: 20090506
  Serious: No
  Sender: FDA-Public Use
  Company Number: None

PATIENT
  Age: 55 Year
  Sex: Female
  Weight: 62.1428 kg

DRUGS (1)
  1. HYOMAX-SR 0.375 MG ARISTOS PH [Suspect]
     Indication: IRRITABLE BOWEL SYNDROME
     Dosage: 1 TABLET ONE TIME DAILY PO
     Route: 048
     Dates: start: 20080811, end: 20080829

REACTIONS (1)
  - AGEUSIA [None]
